FAERS Safety Report 4490903-4 (Version None)
Quarter: 2004Q4

REPORT INFORMATION
  Report Type: 
  Country: None (occurrence: None)
  Receive Date: 20041027
  Receipt Date: 20041020
  Transmission Date: 20050328
  Serious: Yes (Hospitalization, Other)
  Sender: FDA-Public Use
  Company Number: HQWYE030925OCT04

PATIENT

DRUGS (5)
  1. PREMPRO [Suspect]
  2. CLIMARA [Suspect]
  3. MEDROXYPROGESTERONE ACETATE [Suspect]
  4. MEGESTROL ACETATE [Suspect]
  5. PREMARIN [Suspect]

REACTIONS (3)
  - GALLBLADDER CANCER [None]
  - GASTROINTESTINAL DISORDER [None]
  - HEPATOCELLULAR DAMAGE [None]
